FAERS Safety Report 23625850 (Version 1)
Quarter: 2024Q1

REPORT INFORMATION
  Report Type: Spontaneous
  Country: US (occurrence: None)
  Receive Date: 20240312
  Receipt Date: 20240312
  Transmission Date: 20240410
  Serious: Yes (Other)
  Sender: FDA-Public Use
  Company Number: None

PATIENT
  Age: 27 Year
  Sex: Female
  Weight: 50.4 kg

DRUGS (7)
  1. MIRALAX [Suspect]
     Active Substance: POLYETHYLENE GLYCOL 3350
     Indication: Constipation
     Dosage: OTHER QUANTITY : 1 CAP FULL OF POWDER;?FREQUENCY : AS NEEDED;?
     Route: 048
     Dates: start: 20240117, end: 20240215
  2. METOPROLOL [Concomitant]
     Active Substance: METOPROLOL
  3. ADDERALL [Concomitant]
     Active Substance: AMPHETAMINE ASPARTATE\AMPHETAMINE SULFATE\DEXTROAMPHETAMINE SACCHARATE\DEXTROAMPHETAMINE SULFATE
  4. MODAFINIL [Concomitant]
     Active Substance: MODAFINIL
  5. ESOMEPRAZOLE [Concomitant]
     Active Substance: ESOMEPRAZOLE
  6. ACTEMRA [Concomitant]
     Active Substance: TOCILIZUMAB
  7. VITAMIN D [Concomitant]
     Active Substance: VITAMIN D NOS

REACTIONS (9)
  - Neurological symptom [None]
  - Headache [None]
  - Vision blurred [None]
  - Ocular discomfort [None]
  - Irritability [None]
  - Asthenia [None]
  - Gait disturbance [None]
  - Dyspnoea [None]
  - Respiratory muscle weakness [None]

NARRATIVE: CASE EVENT DATE: 20240215
